FAERS Safety Report 7238410-X (Version None)
Quarter: 2011Q1

REPORT INFORMATION
  Report Type: 
  Country: None (occurrence: None)
  Receive Date: 20110121
  Receipt Date: 20110118
  Transmission Date: 20110831
  Serious: Yes (Death)
  Sender: FDA-Public Use
  Company Number: DE-MERCK-1101DEU00067

PATIENT

DRUGS (1)
  1. INVANZ [Suspect]
     Route: 041

REACTIONS (1)
  - EPILEPSY [None]
